FAERS Safety Report 8179778-X (Version None)
Quarter: 2012Q1

REPORT INFORMATION
  Report Type: 
  Country: None (occurrence: None)
  Receive Date: 20120229
  Receipt Date: 20120229
  Transmission Date: 20120608
  Serious: Yes (Death)
  Sender: FDA-Public Use
  Company Number: None

PATIENT
  Age: 65 Year
  Sex: Female

DRUGS (7)
  1. REVLIMID [Suspect]
     Indication: MULTIPLE MYELOMA
     Dosage: 5MG DAILY ORALLY
     Route: 048
     Dates: start: 20110501, end: 20110701
  2. LEVOTHROID [Concomitant]
  3. SENSIPAR [Concomitant]
  4. RENVELA [Concomitant]
  5. OMEPRAZOLE [Concomitant]
  6. LOSARTAN POTASSIUM [Concomitant]
  7. ETODOLAC [Concomitant]

REACTIONS (2)
  - DISEASE PROGRESSION [None]
  - MULTIPLE MYELOMA [None]
